FAERS Safety Report 10340348 (Version 2)
Quarter: 2014Q4

REPORT INFORMATION
  Report Type: Spontaneous
  Country: IT (occurrence: IT)
  Receive Date: 20140724
  Receipt Date: 20141107
  Transmission Date: 20150528
  Serious: Yes (Disabling)
  Sender: FDA-Public Use
  Company Number: IT-BRISTOL-MYERS SQUIBB COMPANY-21217120

PATIENT
  Age: 87 Year
  Sex: Female

DRUGS (5)
  1. COUMADIN [Suspect]
     Active Substance: WARFARIN SODIUM
     Indication: ATRIAL FIBRILLATION
     Dosage: 1 DF=18.75MG/WEEKLY
     Route: 048
     Dates: start: 20090429, end: 20140417
  2. SEQUACOR [Concomitant]
     Active Substance: BISOPROLOL
     Dosage: 1 DF=^TAB 7,5MG^ 7,5MG/ORALLY
     Route: 048
  3. GLUCOBAY [Concomitant]
     Active Substance: ACARBOSE
     Dosage: TABS
     Route: 048
  4. VALSARTAN. [Concomitant]
     Active Substance: VALSARTAN
     Dosage: 1 DF= 172,5MG
     Route: 048
  5. LANOXIN [Concomitant]
     Active Substance: DIGOXIN
     Dosage: 1 DF= 0,0625 MG TAB^ 62,5UG ORALLY
     Route: 048

REACTIONS (2)
  - Haemorrhagic stroke [Recovered/Resolved with Sequelae]
  - Infarction [Recovered/Resolved with Sequelae]

NARRATIVE: CASE EVENT DATE: 20140418
